FAERS Safety Report 6853838-5 (Version None)
Quarter: 2010Q3

REPORT INFORMATION
  Report Type: 
  Country: None (occurrence: None)
  Receive Date: 20100717
  Receipt Date: 20080117
  Transmission Date: 20110219
  Serious: Yes (Other)
  Sender: FDA-Public Use
  Company Number: US-PFIZER INC-2007105870

PATIENT
  Age: 37 Year
  Sex: Male
  Weight: 84.4 kg

DRUGS (1)
  1. CHANTIX [Suspect]
     Indication: NICOTINE DEPENDENCE
     Route: 048
     Dates: start: 20071012, end: 20071108

REACTIONS (1)
  - ABNORMAL BEHAVIOUR [None]
